FAERS Safety Report 19130524 (Version 1)
Quarter: 2021Q2

REPORT INFORMATION
  Report Type: Spontaneous
  Country: US (occurrence: US)
  Receive Date: 20210413
  Receipt Date: 20210413
  Transmission Date: 20210717
  Serious: No
  Sender: FDA-Public Use
  Company Number: US-ELI_LILLY_AND_COMPANY-US202104005478

PATIENT
  Age: 62 Year
  Sex: Female

DRUGS (2)
  1. CYMBALTA [Suspect]
     Active Substance: DULOXETINE HYDROCHLORIDE
     Indication: NEUROPATHY PERIPHERAL
     Dosage: 1 DOSAGE FORM, DAILY
     Route: 048
  2. DULOXETINE HYDROCHLORIDE. [Suspect]
     Active Substance: DULOXETINE HYDROCHLORIDE
     Indication: NEUROPATHY PERIPHERAL
     Dosage: 60 MG, DAILY
     Route: 048

REACTIONS (4)
  - Insomnia [Recovered/Resolved]
  - Neuropathy peripheral [Recovered/Resolved]
  - Product dose omission issue [Unknown]
  - Mobility decreased [Recovered/Resolved]
